FAERS Safety Report 14588303 (Version 4)
Quarter: 2018Q3

REPORT INFORMATION
  Report Type: Report from Study
  Country: US (occurrence: US)
  Receive Date: 20180301
  Receipt Date: 20180814
  Transmission Date: 20181010
  Serious: Yes (Other)
  Sender: FDA-Public Use
  Company Number: US-JAZZ-2018-US-003264

PATIENT
  Sex: Female

DRUGS (21)
  1. CARVEDILOL. [Concomitant]
     Active Substance: CARVEDILOL
  2. ESTRADIOL. [Concomitant]
     Active Substance: ESTRADIOL
  3. METHOCARBAMOL. [Concomitant]
     Active Substance: METHOCARBAMOL
  4. MUCINEX [Concomitant]
     Active Substance: GUAIFENESIN
  5. INTERMEZZO [Concomitant]
     Active Substance: ZOLPIDEM TARTRATE
  6. ALTERIL [Concomitant]
  7. MIRTAZAPINE. [Concomitant]
     Active Substance: MIRTAZAPINE
  8. CLONAZEPAM. [Concomitant]
     Active Substance: CLONAZEPAM
  9. XYREM [Suspect]
     Active Substance: SODIUM OXYBATE
     Dosage: DOSE ADJUSTMENT
     Route: 048
     Dates: start: 200612, end: 201711
  10. AMBIEN CR [Concomitant]
     Active Substance: ZOLPIDEM TARTRATE
  11. ZOLPIDEM TARTRATE. [Concomitant]
     Active Substance: ZOLPIDEM TARTRATE
  12. XYREM [Suspect]
     Active Substance: SODIUM OXYBATE
     Dosage: UNKNOWN DOSE
     Route: 048
  13. CARISOPRODOL. [Concomitant]
     Active Substance: CARISOPRODOL
  14. BELSOMRA [Concomitant]
     Active Substance: SUVOREXANT
  15. CHLORAL HYDRATE [Concomitant]
     Active Substance: CHLORAL HYDRATE
  16. XYREM [Suspect]
     Active Substance: SODIUM OXYBATE
     Dosage: 3 G, BID
     Route: 048
     Dates: start: 200611, end: 200612
  17. DOXYCYCLINE HYCLATE. [Concomitant]
     Active Substance: DOXYCYCLINE HYCLATE
  18. XYREM [Suspect]
     Active Substance: SODIUM OXYBATE
     Indication: INSOMNIA
     Dosage: 2.25 G, BID
     Route: 048
     Dates: start: 200502, end: 2005
  19. XYREM [Suspect]
     Active Substance: SODIUM OXYBATE
     Dosage: 4.5 G, BID
     Route: 048
     Dates: start: 201711
  20. AMITRIPTYLINE HCL [Concomitant]
     Active Substance: AMITRIPTYLINE
  21. LOSARTAN POTASSIUM. [Concomitant]
     Active Substance: LOSARTAN POTASSIUM

REACTIONS (4)
  - Irritable bowel syndrome [Recovering/Resolving]
  - Drug dependence [Unknown]
  - Weight decreased [Not Recovered/Not Resolved]
  - Wrong technique in product usage process [Unknown]
